FAERS Safety Report 4707395-X (Version None)
Quarter: 2005Q3

REPORT INFORMATION
  Report Type: 
  Country: None (occurrence: None)
  Receive Date: 20050705
  Receipt Date: 20050705
  Transmission Date: 20060218
  Serious: Yes (Other)
  Sender: FDA-Public Use
  Company Number: None

PATIENT
  Sex: Male
  Weight: 87.7 kg

DRUGS (4)
  1. ETOPOSIDE [Suspect]
     Indication: ACUTE LYMPHOCYTIC LEUKAEMIA
     Dosage: 100MG/M2 IV OVER 1 HR ON DAY (-3).
     Route: 042
     Dates: start: 20041201, end: 20050416
  2. ALLOGINIC BONE MARROW CELLS [Suspect]
     Indication: ACUTE LYMPHOCYTIC LEUKAEMIA
     Dosage: 3X10C8 IV ON DAY 0.
     Route: 041
     Dates: start: 20050419
  3. GM-CSF [Suspect]
     Indication: ACUTE LYMPHOCYTIC LEUKAEMIA
     Dosage: 250 MCG/M2 SC QD STARTING ON DAY 0 UNTIL ANC }./ = 1000/MCL
     Route: 058
     Dates: start: 20050419
  4. ALFA 2 INTERFERON [Suspect]
     Indication: ACUTE LYMPHOCYTIC LEUKAEMIA
     Dosage: 3MU SC TIW FOR 25 MONTHS, STARTING ON DAY 30. NOTE PH+ PTS. ONLY.
     Route: 058
     Dates: start: 20050419

REACTIONS (6)
  - CONFUSIONAL STATE [None]
  - DYSPNOEA [None]
  - GRAFT VERSUS HOST DISEASE [None]
  - HYPOXIA [None]
  - OBLITERATIVE BRONCHIOLITIS [None]
  - TACHYCARDIA [None]
